FAERS Safety Report 10030166 (Version 2)
Quarter: 2014Q1

REPORT INFORMATION
  Report Type: Spontaneous
  Country: US (occurrence: US)
  Receive Date: 20140323
  Receipt Date: 20140323
  Transmission Date: 20141002
  Serious: No
  Sender: FDA-Public Use
  Company Number: US-ALLERGAN-1310573US

PATIENT
  Age: 63 Year
  Sex: Female

DRUGS (5)
  1. LATISSE 0.03% [Suspect]
     Indication: PRODUCT USED FOR UNKNOWN INDICATION
     Dosage: 2 GTT, SINGLE
     Route: 047
     Dates: start: 20130714, end: 20130714
  2. HEART MEDICATION [Concomitant]
     Indication: HEART RATE INCREASED
     Dosage: UNK
  3. DEPRESSION PILL [Concomitant]
     Indication: DEPRESSION
     Dosage: UNK
  4. HIGH CHOLESTEROL MEDICATION [Concomitant]
     Indication: BLOOD CHOLESTEROL INCREASED
     Dosage: UNK
  5. REFRESH TEARS [Concomitant]
     Indication: DRY EYE
     Dosage: 2 GTT, BID
     Route: 047

REACTIONS (4)
  - Drug administered at inappropriate site [Unknown]
  - Ocular hyperaemia [Recovering/Resolving]
  - Scleral hyperaemia [Recovering/Resolving]
  - Eye discharge [Not Recovered/Not Resolved]
